FAERS Safety Report 14040950 (Version 16)
Quarter: 2018Q2

REPORT INFORMATION
  Report Type: Spontaneous
  Country: US (occurrence: US)
  Receive Date: 20171004
  Receipt Date: 20180423
  Transmission Date: 20180711
  Serious: Yes (Death)
  Sender: FDA-Public Use
  Company Number: US-ACTELION-A-NJ2017-160216

PATIENT
  Age: 66 Year
  Sex: Female
  Weight: 54.42 kg

DRUGS (18)
  1. LETAIRIS [Suspect]
     Active Substance: AMBRISENTAN
     Indication: PULMONARY ARTERIAL HYPERTENSION
     Dosage: 10 MG, QD
     Route: 048
     Dates: start: 20090508
  2. CLEOCIN [Concomitant]
     Active Substance: CLINDAMYCIN PHOSPHATE
  3. KLONOPIN [Concomitant]
     Active Substance: CLONAZEPAM
  4. LASIX [Concomitant]
     Active Substance: FUROSEMIDE
     Dosage: 40 MG, QD
  5. ORENITRAM [Suspect]
     Active Substance: TREPROSTINIL
     Indication: PRODUCT USED FOR UNKNOWN INDICATION
     Dosage: 3 MG, TID
     Route: 065
  6. SYNTHROID [Concomitant]
     Active Substance: LEVOTHYROXINE SODIUM
  7. METOLAZONE. [Concomitant]
     Active Substance: METOLAZONE
  8. METOPROLOL. [Concomitant]
     Active Substance: METOPROLOL
  9. CAPTOPRIL. [Concomitant]
     Active Substance: CAPTOPRIL
  10. COUMADIN [Concomitant]
     Active Substance: WARFARIN SODIUM
  11. MIDODRINE [Concomitant]
     Active Substance: MIDODRINE
     Dosage: 5 MG, BID
  12. VELETRI [Suspect]
     Active Substance: EPOPROSTENOL
     Dosage: UNK
     Route: 042
     Dates: end: 201711
  13. ORENITRAM [Suspect]
     Active Substance: TREPROSTINIL
     Dosage: UNK
     Route: 065
  14. ZYLOPRIM [Concomitant]
     Active Substance: ALLOPURINOL
  15. PROTONIX [Concomitant]
     Active Substance: PANTOPRAZOLE SODIUM
     Dosage: 40 MG, BID
  16. VELETRI [Suspect]
     Active Substance: EPOPROSTENOL
     Indication: PULMONARY HYPERTENSION
     Dosage: 19.5 NG/KG, PER MIN
     Route: 042
     Dates: end: 20171114
  17. ORENITRAM [Suspect]
     Active Substance: TREPROSTINIL
     Dosage: 3.5 MG, TID
     Route: 065
  18. SILDENAFIL. [Concomitant]
     Active Substance: SILDENAFIL

REACTIONS (19)
  - Fatigue [Not Recovered/Not Resolved]
  - Sleep disorder due to general medical condition, insomnia type [Not Recovered/Not Resolved]
  - Scleroderma [Unknown]
  - Weight decreased [Unknown]
  - Nausea [Not Recovered/Not Resolved]
  - Cardiac disorder [Not Recovered/Not Resolved]
  - Diarrhoea [Not Recovered/Not Resolved]
  - Dyspnoea [Not Recovered/Not Resolved]
  - Incorrect dose administered [Unknown]
  - Dizziness [Not Recovered/Not Resolved]
  - Heart rate irregular [Not Recovered/Not Resolved]
  - Pain in extremity [Not Recovered/Not Resolved]
  - Anxiety [Not Recovered/Not Resolved]
  - Nasopharyngitis [Unknown]
  - Dose calculation error [Unknown]
  - Vision blurred [Not Recovered/Not Resolved]
  - Poor quality sleep [Not Recovered/Not Resolved]
  - Death [Fatal]
  - Hypotension [Not Recovered/Not Resolved]

NARRATIVE: CASE EVENT DATE: 20180405
